FAERS Safety Report 16425416 (Version 1)
Quarter: 2019Q2

REPORT INFORMATION
  Report Type: Spontaneous
  Country: US (occurrence: US)
  Receive Date: 20190613
  Receipt Date: 20190613
  Transmission Date: 20190711
  Serious: Yes (Other)
  Sender: FDA-Public Use
  Company Number: US-PFIZER INC-2019248307

PATIENT
  Age: 10 Year
  Sex: Male

DRUGS (1)
  1. BENEFIX [Suspect]
     Active Substance: COAGULATION FACTOR IX RECOMBINANT HUMAN\ISOPROPYL ALCOHOL
     Indication: HAEMORRHAGE
     Dosage: 100 IU/KG, AS NEEDED (3900 UNITS (+5%) = 100 UNITS/KG DAILY ON DEMAND)

REACTIONS (2)
  - Haemarthrosis [Unknown]
  - Off label use [Unknown]
